FAERS Safety Report 5876698-8 (Version None)
Quarter: 2008Q3

REPORT INFORMATION
  Report Type: 
  Country: None (occurrence: None)
  Receive Date: 20080908
  Receipt Date: 20080825
  Transmission Date: 20090109
  Serious: Yes (Other)
  Sender: FDA-Public Use
  Company Number: 2008BI022016

PATIENT
  Age: 30 Year
  Sex: Female

DRUGS (2)
  1. AVONEX [Suspect]
     Indication: MULTIPLE SCLEROSIS
     Dosage: 30 UG;QW;IM
     Route: 030
     Dates: start: 20010301, end: 20020325
  2. NOVANTRONE [Concomitant]

REACTIONS (2)
  - DYSSTASIA [None]
  - MYOCARDIAL INFARCTION [None]
